FAERS Safety Report 10282126 (Version 2)
Quarter: 2014Q3

REPORT INFORMATION
  Report Type: Spontaneous
  Country: US (occurrence: US)
  Receive Date: 20140707
  Receipt Date: 20140707
  Transmission Date: 20150326
  Serious: Yes (Death, Hospitalization, Other)
  Sender: FDA-Public Use
  Company Number: US-009507513-0705USA05402

PATIENT
  Sex: Female
  Weight: 65.32 kg

DRUGS (2)
  1. FOSAMAX [Suspect]
     Active Substance: ALENDRONATE SODIUM
     Indication: OSTEOPOROSIS
     Dosage: 70  MG, QW
     Route: 048
     Dates: start: 200205, end: 20061226
  2. FOSAMAX PLUS D [Suspect]
     Active Substance: ALENDRONATE SODIUM\CHOLECALCIFEROL
     Indication: OSTEOPOROSIS
     Route: 048
     Dates: start: 20061226, end: 200701

REACTIONS (32)
  - Pneumonia [Unknown]
  - Asthma [Unknown]
  - Bone disorder [Unknown]
  - Osteomyelitis [Unknown]
  - Bronchial disorder [Not Recovered/Not Resolved]
  - Hiatus hernia [Unknown]
  - Fracture [Unknown]
  - Pneumonia [Unknown]
  - Compression fracture [Unknown]
  - Osteomyelitis [Not Recovered/Not Resolved]
  - Drug intolerance [Unknown]
  - Atelectasis [Not Recovered/Not Resolved]
  - Gastrooesophageal reflux disease [Unknown]
  - Cerebral atrophy [Unknown]
  - Bronchitis [Unknown]
  - Pernicious anaemia [Unknown]
  - Bone disorder [Unknown]
  - Chronic obstructive pulmonary disease [Unknown]
  - Chronic obstructive pulmonary disease [Unknown]
  - Coronary artery disease [Not Recovered/Not Resolved]
  - Nausea [Unknown]
  - Chronic obstructive pulmonary disease [Fatal]
  - Oral infection [Unknown]
  - Compression fracture [Recovering/Resolving]
  - Bronchitis [Unknown]
  - Gastrooesophageal reflux disease [Unknown]
  - Osteonecrosis of jaw [Recovering/Resolving]
  - Insomnia [Unknown]
  - Depression [Not Recovered/Not Resolved]
  - Anxiety [Unknown]
  - Asthma [Unknown]
  - Chronic obstructive pulmonary disease [Unknown]

NARRATIVE: CASE EVENT DATE: 2002
